FAERS Safety Report 23479110 (Version 1)
Quarter: 2024Q1

REPORT INFORMATION
  Report Type: Report from Study
  Country: US (occurrence: US)
  Receive Date: 20240205
  Receipt Date: 20240205
  Transmission Date: 20240410
  Serious: Yes (Other)
  Sender: FDA-Public Use
  Company Number: US-ABBVIE-5420201

PATIENT
  Sex: Female
  Weight: 96.161 kg

DRUGS (35)
  1. HUMIRA [Suspect]
     Active Substance: ADALIMUMAB
     Indication: Psoriasis
     Route: 058
  2. PIOGLITAZONE [Concomitant]
     Active Substance: PIOGLITAZONE
     Indication: Diabetes mellitus
  3. ALBUTEROL [Concomitant]
     Active Substance: ALBUTEROL
     Indication: Asthma
     Dosage: INHALER?FREQUENCY TEXT: 2 PUFFS PRN
  4. CLOBETASOL [Concomitant]
     Active Substance: CLOBETASOL
     Indication: Psoriasis
     Dosage: 0.05%
  5. CALCIUM [Concomitant]
     Active Substance: CALCIUM
     Indication: Short-bowel syndrome
     Dosage: FREQUENCY TEXT: 500 MG 1XDAY
  6. MONTELUKAST [Concomitant]
     Active Substance: MONTELUKAST SODIUM
     Indication: Asthma
  7. BENADRYL [Concomitant]
     Active Substance: DIPHENHYDRAMINE HYDROCHLORIDE
     Indication: Insomnia
     Dosage: FREQUENCY TEXT: PRN
  8. MAGNESIUM [Concomitant]
     Active Substance: MAGNESIUM
     Indication: Muscle spasms
  9. MUCINEX [Concomitant]
     Active Substance: GUAIFENESIN
     Indication: Sinus congestion
     Dosage: FREQUENCY TEXT: PRN
  10. PAROXETINE [Concomitant]
     Active Substance: PAROXETINE
     Indication: Anxiety
  11. HYDROXYZINE [Concomitant]
     Active Substance: HYDROXYZINE HYDROCHLORIDE
     Indication: Cystitis interstitial
     Dosage: FREQUENCY TEXT: 25 MG 1XDAY AT NIGHT PRN
  12. AZELASTINE [Concomitant]
     Active Substance: AZELASTINE\AZELASTINE HYDROCHLORIDE
     Indication: Allergic sinusitis
     Dosage: SPRAYS EACH NOSTRIL 1XDAY PRN? 0.1%
  13. FOLIC ACID [Concomitant]
     Active Substance: FOLIC ACID
     Indication: Vitamin supplementation
  14. ZOFRAN [Concomitant]
     Active Substance: ONDANSETRON HYDROCHLORIDE
     Indication: Impaired gastric emptying
     Dosage: DISSOLVABLE
  15. DICYCLOMINE [Concomitant]
     Active Substance: DICYCLOMINE HYDROCHLORIDE
     Indication: Gastrointestinal pain
  16. FROVATRIPTAN [Concomitant]
     Active Substance: FROVATRIPTAN
     Indication: Migraine
     Dosage: FREQUENCY TEXT: PRN
  17. IRON [Concomitant]
     Active Substance: IRON
     Indication: Iron deficiency anaemia
  18. VITAMIN D [Concomitant]
     Active Substance: VITAMIN D NOS
     Indication: Short-bowel syndrome
     Dosage: 1 GEL CAP A DAY
  19. ACYCLOVIR [Concomitant]
     Active Substance: ACYCLOVIR
     Indication: Oral herpes
     Dosage: FREQUENCY TEXT: 3XDAY PRN
  20. NYSTATIN [Concomitant]
     Active Substance: NYSTATIN
     Indication: Candida infection
     Dosage: 100K UNIT?FREQUENCY TEXT: 5 ML SWISH 4XDAY PRN
  21. DIFLUCAN [Concomitant]
     Active Substance: FLUCONAZOLE
     Indication: Fungal infection
     Dosage: FREQUENCY TEXT: PRN
  22. FISH OIL [Concomitant]
     Active Substance: FISH OIL
     Indication: Blood triglycerides increased
  23. TIZANIDINE [Concomitant]
     Active Substance: TIZANIDINE
     Indication: Migraine
  24. ALLEGRA [Concomitant]
     Active Substance: FEXOFENADINE HYDROCHLORIDE
     Indication: Multiple allergies
  25. IMODIUM [Concomitant]
     Active Substance: LOPERAMIDE HYDROCHLORIDE
     Indication: Gastrointestinal stoma complication
     Dosage: FREQUENCY TEXT:  X2 1XDAY
  26. FEXOFENADINE [Concomitant]
     Active Substance: FEXOFENADINE HYDROCHLORIDE
     Indication: Multiple allergies
  27. SIMETHICONE (DIMETHICONE) [Concomitant]
     Active Substance: DIMETHICONE
     Indication: Flatulence
     Dosage: FREQUENCY TEXT: X2 PRN
  28. METHOTREXATE [Concomitant]
     Active Substance: METHOTREXATE
     Indication: Psoriasis
  29. HYDROCORTISONE [Concomitant]
     Active Substance: HYDROCORTISONE
     Indication: Psoriasis
     Dosage: 2.5%?FREQUENCY TEXT: PRN
  30. GABAPENTIN [Concomitant]
     Active Substance: GABAPENTIN
     Indication: Ehlers-Danlos syndrome
     Dosage: TIME INTERVAL: 0.33333333 DAYS
  31. CREON [Concomitant]
     Active Substance: PANCRELIPASE AMYLASE\PANCRELIPASE LIPASE\PANCRELIPASE PROTEASE
     Indication: Abdominal distension
     Dosage: FREQUENCY TEXT: 36,000 USP UNITS 1 CAPSULE EACH MEAL
  32. BUPROPION [Concomitant]
     Active Substance: BUPROPION
     Indication: Anxiety
     Dosage: TIME INTERVAL: 0.33333333 DAYS: SR
  33. NEBIVOLOL [Concomitant]
     Active Substance: NEBIVOLOL
     Indication: Tachycardia
  34. ANORO ELLIPTA [Concomitant]
     Active Substance: UMECLIDINIUM BROMIDE\VILANTEROL TRIFENATATE
     Indication: Asthma
     Dosage: INHALER?DOSE 62.5 UG?FREQUENCY TEXT: 1PUFF DAILY
  35. ESTRADIOL [Concomitant]
     Active Substance: ESTRADIOL
     Indication: Hot flush

REACTIONS (42)
  - Lupus-like syndrome [Unknown]
  - Thoracic outlet syndrome [Unknown]
  - Drug hypersensitivity [Unknown]
  - Gingival recession [Unknown]
  - Fracture [Unknown]
  - Chronic obstructive pulmonary disease [Unknown]
  - Dizziness [Recovered/Resolved]
  - Osteoarthritis [Unknown]
  - Pyrexia [Recovered/Resolved]
  - Swelling face [Recovered/Resolved]
  - Migraine [Unknown]
  - Dehydration [Recovered/Resolved]
  - Infertility [Unknown]
  - Exostosis [Unknown]
  - Hypotension [Recovered/Resolved]
  - Erythema [Recovered/Resolved]
  - Sinus disorder [Unknown]
  - Short-bowel syndrome [Unknown]
  - Crohn^s disease [Unknown]
  - Medical procedure [Unknown]
  - Postoperative wound infection [Unknown]
  - Hysterectomy [Unknown]
  - Dizziness [Recovered/Resolved]
  - Ehlers-Danlos syndrome [Unknown]
  - Postural orthostatic tachycardia syndrome [Unknown]
  - Thoracic outlet syndrome [Unknown]
  - Back pain [Recovered/Resolved]
  - Psoriasis [Unknown]
  - Psoriatic arthropathy [Unknown]
  - Joint dislocation [Unknown]
  - Trismus [Unknown]
  - Colorectal adenoma [Unknown]
  - Mycotic allergy [Unknown]
  - Food interaction [Unknown]
  - Joint dislocation [Unknown]
  - Muscle tightness [Unknown]
  - Muscle strain [Unknown]
  - Hypersensitivity [Unknown]
  - Mite allergy [Unknown]
  - Allergy to animal [Unknown]
  - Allergy to plants [Unknown]
  - Hypersensitivity [Unknown]

NARRATIVE: CASE EVENT DATE: 20050101
